FAERS Safety Report 21865516 (Version 2)
Quarter: 2023Q2

REPORT INFORMATION
  Report Type: Spontaneous
  Country: US (occurrence: US)
  Receive Date: 20230116
  Receipt Date: 20230531
  Transmission Date: 20230722
  Serious: Yes (Hospitalization, Other)
  Sender: FDA-Public Use
  Company Number: US-TAKEDA-2023TUS003373

PATIENT
  Sex: Male
  Weight: 77 kg

DRUGS (1)
  1. LIVTENCITY [Suspect]
     Active Substance: MARIBAVIR
     Indication: Cytomegalovirus infection
     Dosage: 2 DOSAGE FORM, BID
     Route: 065
     Dates: start: 20221221

REACTIONS (2)
  - Ulcer haemorrhage [Unknown]
  - Haemoglobin decreased [Unknown]
